FAERS Safety Report 8400144-3 (Version None)
Quarter: 2012Q2

REPORT INFORMATION
  Report Type: 
  Country: None (occurrence: None)
  Receive Date: 20120531
  Receipt Date: 20120522
  Transmission Date: 20120825
  Serious: Yes (Hospitalization)
  Sender: FDA-Public Use
  Company Number: US-CELGENEUS-163-21880-12052626

PATIENT
  Sex: Female

DRUGS (7)
  1. REVLIMID [Suspect]
     Indication: MULTIPLE MYELOMA
     Dosage: 25 MILLIGRAM
     Route: 048
     Dates: start: 20120401
  2. PREVACID [Concomitant]
     Route: 065
  3. CHEMOTHERAPY [Concomitant]
     Route: 065
  4. DEXAMETHASONE [Concomitant]
     Route: 065
  5. CRESTOR [Concomitant]
     Route: 065
  6. NOVOLIN 70/30 [Concomitant]
     Dosage: 70/30
     Route: 065
  7. ASPIRIN [Concomitant]
     Route: 065

REACTIONS (2)
  - ULCER HAEMORRHAGE [None]
  - DIARRHOEA HAEMORRHAGIC [None]
